FAERS Safety Report 4679308-0 (Version None)
Quarter: 2005Q2

REPORT INFORMATION
  Report Type: 
  Country: None (occurrence: None)
  Receive Date: 20050531
  Receipt Date: 20050517
  Transmission Date: 20051028
  Serious: Yes (Death)
  Sender: FDA-Public Use
  Company Number: B0359702A

PATIENT
  Sex: Male

DRUGS (1)
  1. PAXIL [Suspect]
     Dates: start: 20010101

REACTIONS (9)
  - ANXIETY [None]
  - BEREAVEMENT [None]
  - COMPLETED SUICIDE [None]
  - FEELING ABNORMAL [None]
  - FEELING OF DESPAIR [None]
  - INJURY ASPHYXIATION [None]
  - INSOMNIA [None]
  - MARITAL PROBLEM [None]
  - PANIC ATTACK [None]
